FAERS Safety Report 11235332 (Version 1)
Quarter: 2015Q3

REPORT INFORMATION
  Report Type: Spontaneous
  Country: US (occurrence: US)
  Receive Date: 20150702
  Receipt Date: 20150702
  Transmission Date: 20151125
  Serious: Yes (Other)
  Sender: FDA-Public Use
  Company Number: US-CELGENEUS-USA-2015065271

PATIENT
  Sex: Female
  Weight: 61.74 kg

DRUGS (5)
  1. DIPHENOXYLATE-ATROPINE [Concomitant]
     Indication: PRODUCT USED FOR UNKNOWN INDICATION
     Route: 065
  2. ONDANSETRON [Concomitant]
     Active Substance: ONDANSETRON
     Indication: PRODUCT USED FOR UNKNOWN INDICATION
     Route: 065
  3. THALOMID [Suspect]
     Active Substance: THALIDOMIDE
     Indication: OFF LABEL USE
     Route: 048
     Dates: start: 200807
  4. THALOMID [Suspect]
     Active Substance: THALIDOMIDE
     Dosage: 4 MILLIGRAM
     Route: 048
     Dates: start: 20110425
  5. THALOMID [Suspect]
     Active Substance: THALIDOMIDE
     Indication: PRURIGO
     Route: 048
     Dates: start: 200805, end: 2008

REACTIONS (1)
  - White blood cell count decreased [Unknown]
